FAERS Safety Report 5303718-1 (Version None)
Quarter: 2007Q2

REPORT INFORMATION
  Report Type: 
  Country: None (occurrence: None)
  Receive Date: 20070420
  Receipt Date: 20070410
  Transmission Date: 20071010
  Serious: Yes (Hospitalization)
  Sender: FDA-Public Use
  Company Number: CG-MERCK-0704USA01670

PATIENT
  Sex: Male

DRUGS (1)
  1. MECTIZAN [Suspect]
     Route: 065
     Dates: start: 20061213

REACTIONS (8)
  - ABNORMAL BEHAVIOUR [None]
  - AGITATION [None]
  - BEDRIDDEN [None]
  - COUGH [None]
  - DYSPNOEA [None]
  - HALLUCINATION, VISUAL [None]
  - LOGORRHOEA [None]
  - VERTIGO [None]
